FAERS Safety Report 19004926 (Version 1)
Quarter: 2021Q1

REPORT INFORMATION
  Report Type: Report from Study
  Country: US (occurrence: US)
  Receive Date: 20210313
  Receipt Date: 20210313
  Transmission Date: 20210420
  Serious: No
  Sender: FDA-Public Use
  Company Number: NVSC2019US095442

PATIENT

DRUGS (1)
  1. ENTRESTO [Suspect]
     Active Substance: SACUBITRIL\VALSARTAN
     Indication: CARDIAC FAILURE CONGESTIVE
     Dosage: 50 MG (24/26 MG)
     Route: 065

REACTIONS (5)
  - Weight increased [Unknown]
  - Joint swelling [Unknown]
  - Dyspnoea [Unknown]
  - Cough [Unknown]
  - Malaise [Unknown]
